FAERS Safety Report 5786299-8 (Version None)
Quarter: 2008Q2

REPORT INFORMATION
  Report Type: 
  Country: None (occurrence: None)
  Receive Date: 20080624
  Receipt Date: 20070807
  Transmission Date: 20081010
  Serious: No
  Sender: FDA-Public Use
  Company Number: US-ASTRAZENECA-2007UW19105

PATIENT
  Age: 71 Year
  Sex: Female
  Weight: 52.6 kg

DRUGS (5)
  1. PULMICORT RESPULES [Suspect]
     Indication: CHRONIC OBSTRUCTIVE PULMONARY DISEASE
     Dosage: .5 MG/2 ML BID
     Route: 055
  2. PULMICORT RESPULES [Suspect]
     Indication: EMPHYSEMA
     Dosage: .5 MG/2 ML BID
     Route: 055
  3. ALBUTEROL [Concomitant]
  4. ADVAIR DISKUS 100/50 [Concomitant]
  5. THEOPHYLLINE [Concomitant]

REACTIONS (5)
  - CONJUNCTIVITIS [None]
  - DYSPEPSIA [None]
  - EYE DISORDER [None]
  - EYE PRURITUS [None]
  - TONGUE BLISTERING [None]
